FAERS Safety Report 7918515-8 (Version None)
Quarter: 2011Q4

REPORT INFORMATION
  Report Type: 
  Country: None (occurrence: None)
  Receive Date: 20111116
  Receipt Date: 20111109
  Transmission Date: 20120403
  Serious: Yes (Other)
  Sender: FDA-Public Use
  Company Number: CA-JNJFOC-20111105054

PATIENT
  Sex: Female
  Weight: 61 kg

DRUGS (5)
  1. RABEPRAZOLE SODIUM [Concomitant]
  2. IMURAN [Concomitant]
  3. REMICADE [Suspect]
     Indication: CROHN'S DISEASE
     Route: 042
     Dates: start: 20100502
  4. CELEXA [Concomitant]
  5. ASACOL [Concomitant]

REACTIONS (1)
  - BASAL CELL CARCINOMA [None]
